FAERS Safety Report 8561531-6 (Version None)
Quarter: 2012Q3

REPORT INFORMATION
  Report Type: 
  Country: None (occurrence: None)
  Receive Date: 20120802
  Receipt Date: 20120724
  Transmission Date: 20120928
  Serious: Yes (Hospitalization)
  Sender: FDA-Public Use
  Company Number: DE-CELGENEUS-062-C5013-12032601

PATIENT
  Age: 64 Year
  Sex: Male
  Weight: 102 kg

DRUGS (4)
  1. GEMCITABINE HYDROCHLORIDE [Suspect]
     Indication: MANTLE CELL LYMPHOMA
     Dosage: 2000 MILLIGRAM
     Route: 065
     Dates: start: 20100215, end: 20100525
  2. CEFTRIAXONE [Concomitant]
     Route: 041
  3. LEVOTHYROXINE SODIUM [Concomitant]
     Dosage: 50 MICROGRAM
     Route: 065
  4. SIMVASTATIN [Concomitant]
     Route: 065

REACTIONS (1)
  - METASTATIC RENAL CELL CARCINOMA [None]
